FAERS Safety Report 7338468-3 (Version None)
Quarter: 2011Q1

REPORT INFORMATION
  Report Type: 
  Country: None (occurrence: None)
  Receive Date: 20110308
  Receipt Date: 20110223
  Transmission Date: 20110831
  Serious: Yes (Hospitalization, Other)
  Sender: FDA-Public Use
  Company Number: FR-ELI_LILLY_AND_COMPANY-FR201103001426

PATIENT
  Sex: Female

DRUGS (5)
  1. AMLODIPINE [Concomitant]
     Dosage: 10 MG, DAILY (1/D)
     Route: 048
  2. NEXIUM [Concomitant]
     Indication: DEPRESSION
     Dosage: 40 MG, DAILY (1/D)
     Route: 048
     Dates: start: 20080318
  3. XALATAN [Concomitant]
     Route: 048
     Dates: start: 20081117
  4. EDUCTYL [Concomitant]
     Route: 054
     Dates: start: 20080319
  5. CYMBALTA [Suspect]
     Indication: DEPRESSION
     Dosage: 30 MG, DAILY (1/D)
     Route: 048
     Dates: start: 20091105, end: 20091215

REACTIONS (12)
  - NAUSEA [None]
  - ABDOMINAL PAIN [None]
  - MYOCLONUS [None]
  - VOMITING [None]
  - SYNCOPE [None]
  - SUBILEUS [None]
  - DECREASED APPETITE [None]
  - GENERAL PHYSICAL HEALTH DETERIORATION [None]
  - COGNITIVE DISORDER [None]
  - ACCELERATED HYPERTENSION [None]
  - VITAMIN B12 DEFICIENCY [None]
  - TACHYCARDIA [None]
